FAERS Safety Report 25769085 (Version 1)
Quarter: 2025Q3

REPORT INFORMATION
  Report Type: Report from Study
  Country: US (occurrence: US)
  Receive Date: 20250905
  Receipt Date: 20250905
  Transmission Date: 20251020
  Serious: Yes (Other)
  Sender: AMGEN
  Company Number: US-AMGEN-USASL2025173198

PATIENT
  Age: 52 Year
  Sex: Male
  Weight: 122.63 kg

DRUGS (6)
  1. KRYSTEXXA [Suspect]
     Active Substance: PEGLOTICASE
     Indication: Gout
     Dosage: 8 MILLIGRAM, Q2WK
     Route: 040
     Dates: start: 20250814
  2. KRYSTEXXA [Suspect]
     Active Substance: PEGLOTICASE
     Dosage: 8 MILLIGRAM, Q2WK
     Route: 040
     Dates: start: 20250828, end: 20250828
  3. BENADRYL [Concomitant]
     Active Substance: DIPHENHYDRAMINE HYDROCHLORIDE
     Dates: start: 20250828
  4. METHYLPREDNISOLONE [Concomitant]
     Active Substance: METHYLPREDNISOLONE
     Route: 040
     Dates: start: 20250828, end: 20250828
  5. TYLENOL [Concomitant]
     Active Substance: ACETAMINOPHEN
     Route: 048
  6. TYLENOL [Concomitant]
     Active Substance: ACETAMINOPHEN
     Route: 048
     Dates: start: 20250828

REACTIONS (11)
  - Dysgeusia [Recovered/Resolved]
  - Abdominal discomfort [Recovered/Resolved]
  - Chills [Recovering/Resolving]
  - Vomiting projectile [Recovering/Resolving]
  - Dyspnoea [Recovering/Resolving]
  - Eyelid ptosis [Recovering/Resolving]
  - Wheezing [Recovering/Resolving]
  - Hypotension [Recovering/Resolving]
  - Nausea [Recovering/Resolving]
  - Blood pressure increased [Not Recovered/Not Resolved]
  - Blood uric acid increased [Unknown]

NARRATIVE: CASE EVENT DATE: 20250816
